FAERS Safety Report 21031082 (Version 1)
Quarter: 2022Q3

REPORT INFORMATION
  Report Type: Spontaneous
  Country: US (occurrence: None)
  Receive Date: 20220701
  Receipt Date: 20220701
  Transmission Date: 20221027
  Serious: No
  Sender: FDA-Public Use
  Company Number: US-ROCHE-3033723

PATIENT
  Age: 83 Year
  Sex: Female
  Weight: 77.180 kg

DRUGS (2)
  1. ACTEMRA [Suspect]
     Active Substance: TOCILIZUMAB
     Indication: Giant cell arteritis
     Route: 058
  2. ACTEMRA [Suspect]
     Active Substance: TOCILIZUMAB

REACTIONS (7)
  - Product dose omission issue [Unknown]
  - Device difficult to use [Unknown]
  - Needle issue [Unknown]
  - Unevaluable event [Unknown]
  - Rash erythematous [Unknown]
  - Skin discolouration [Unknown]
  - Pharyngeal disorder [Unknown]

NARRATIVE: CASE EVENT DATE: 20220220
